FAERS Safety Report 9232934 (Version 1)
Quarter: 2013Q2

REPORT INFORMATION
  Report Type: Spontaneous
  Country: CA (occurrence: CA)
  Receive Date: 20130416
  Receipt Date: 20130416
  Transmission Date: 20140414
  Serious: Yes (Hospitalization, Other)
  Sender: FDA-Public Use
  Company Number: CA-ELI_LILLY_AND_COMPANY-CA201304003852

PATIENT
  Age: 37 Year
  Sex: Male

DRUGS (14)
  1. OLANZAPINE [Suspect]
     Dosage: 2.5 MG, QD
  2. OLANZAPINE [Suspect]
     Dosage: 12.5 MG, QD
  3. CITALOPRAM [Concomitant]
     Dosage: 40 MG, UNK
  4. TRAZODONE [Concomitant]
     Dosage: 150 MG, EACH EVENING
  5. CLONAZEPAM [Concomitant]
     Dosage: 2 MG, TID
  6. HYDROMORPHONE [Concomitant]
     Dosage: 235 MG, EVERY 4 HRS
     Route: 058
  7. HYDROMORPHONE [Concomitant]
     Dosage: 60 MG, EVERY 4 HRS
     Route: 058
  8. PANTOPRAZOLE [Concomitant]
  9. METFORMIN [Concomitant]
  10. PERINDOPRIL [Concomitant]
  11. FUROSEMIDE [Concomitant]
  12. SENNA [Concomitant]
  13. DOCUSATE SODIUM [Concomitant]
  14. LINEZOLID [Concomitant]
     Indication: INFECTION
     Dosage: 600 MG, BID
     Route: 048

REACTIONS (7)
  - Serotonin syndrome [Unknown]
  - Anxiety [Recovering/Resolving]
  - Panic attack [Recovering/Resolving]
  - Cellulitis staphylococcal [Unknown]
  - Panniculitis [Unknown]
  - Drug interaction [Unknown]
  - Cellulitis [None]
